FAERS Safety Report 10172679 (Version 2)
Quarter: 2014Q2

REPORT INFORMATION
  Report Type: Spontaneous
  Country: AT (occurrence: AT)
  Receive Date: 20140515
  Receipt Date: 20140612
  Transmission Date: 20141212
  Serious: Yes (Hospitalization, Disabling)
  Sender: FDA-Public Use
  Company Number: AT-B.I. PHARMACEUTICALS,INC./RIDGEFIELD-2014-BI-20280BE

PATIENT
  Age: 79 Year
  Sex: Male
  Weight: 75 kg

DRUGS (3)
  1. PRADAXA [Suspect]
     Indication: ATRIAL FIBRILLATION
     Dosage: 220 MG
     Route: 065
     Dates: start: 201301
  2. CANDESARTAN HCT [Concomitant]
     Indication: HYPERTENSION
     Dosage: 1 ANZ
     Route: 065
  3. AGOPTON [Concomitant]
     Dosage: 30 MG
     Route: 065

REACTIONS (1)
  - Cerebrovascular accident [Recovered/Resolved]
